FAERS Safety Report 24097364 (Version 2)
Quarter: 2024Q3

REPORT INFORMATION
  Report Type: Spontaneous
  Country: PL (occurrence: PL)
  Receive Date: 20240716
  Receipt Date: 20240718
  Transmission Date: 20241017
  Serious: Yes (Death)
  Sender: PFIZER
  Company Number: PL-MLMSERVICE-20240704-PI120194-00270-1

PATIENT
  Sex: Female

DRUGS (3)
  1. METHYLPREDNISOLONE SODIUM SUCCINATE [Suspect]
     Active Substance: METHYLPREDNISOLONE SODIUM SUCCINATE
     Indication: Tolosa-Hunt syndrome
     Dosage: 0.5 G, REDUCED DOSES DUE TO DM
  2. METHYLPREDNISOLONE SODIUM SUCCINATE [Suspect]
     Active Substance: METHYLPREDNISOLONE SODIUM SUCCINATE
     Dosage: 1000 MG, 1X/DAY
     Route: 042
  3. PREDNISOLONE [Suspect]
     Active Substance: PREDNISOLONE
     Indication: Tolosa-Hunt syndrome
     Dosage: 60 MG, 1X/DAY, GRADUALLY DECREASING DOSES
     Route: 048

REACTIONS (6)
  - Staphylococcal abscess [Fatal]
  - Staphylococcal sepsis [Fatal]
  - Respiratory failure [Fatal]
  - Circulatory collapse [Fatal]
  - Off label use [Unknown]
  - Drug effective for unapproved indication [Unknown]
